FAERS Safety Report 23211450 (Version 1)
Quarter: 2023Q4

REPORT INFORMATION
  Report Type: Spontaneous
  Country: AU (occurrence: AU)
  Receive Date: 20231121
  Receipt Date: 20231121
  Transmission Date: 20240109
  Serious: Yes (Hospitalization, Disabling)
  Sender: FDA-Public Use
  Company Number: AU-PFIZER INC-202300376365

PATIENT
  Age: 27 Year
  Sex: Female

DRUGS (2)
  1. PRISTIQ EXTENDED-RELEASE [Suspect]
     Active Substance: DESVENLAFAXINE SUCCINATE
     Indication: Anxiety
     Dosage: 50 MG, 1X/DAY
     Dates: start: 20150917, end: 202108
  2. PRISTIQ EXTENDED-RELEASE [Suspect]
     Active Substance: DESVENLAFAXINE SUCCINATE
     Indication: Depression
     Dosage: 100 MG, 1X/DAY
     Dates: start: 202108, end: 202301

REACTIONS (5)
  - Organic brain syndrome [Recovering/Resolving]
  - Fatigue [Recovering/Resolving]
  - Cognitive disorder [Recovering/Resolving]
  - Burnout syndrome [Recovering/Resolving]
  - Therapeutic product effect incomplete [Recovering/Resolving]

NARRATIVE: CASE EVENT DATE: 20150917
